FAERS Safety Report 10166303 (Version 3)
Quarter: 2014Q2

REPORT INFORMATION
  Report Type: Spontaneous
  Country: PT (occurrence: PT)
  Receive Date: 20140512
  Receipt Date: 20140625
  Transmission Date: 20141212
  Serious: Yes (Other)
  Sender: FDA-Public Use
  Company Number: PT-ABBVIE-14K-130-1236106-00

PATIENT
  Age: 9 Year
  Sex: Male

DRUGS (4)
  1. DEPAKINE CHRONO [Suspect]
     Indication: EPILEPSY
     Dosage: PROLONGED-RELEASE
     Route: 048
     Dates: start: 2013
  2. DEPAKINE CHRONO [Suspect]
     Dosage: PROLONGED-RELEASE
     Route: 048
     Dates: end: 20140519
  3. DEPAKINE CHRONO [Suspect]
     Dosage: PROLONGED-RELEASE
     Route: 048
     Dates: start: 20140519
  4. KEPPRA [Suspect]
     Indication: EPILEPSY
     Route: 048

REACTIONS (5)
  - Medication residue present [Not Recovered/Not Resolved]
  - Epilepsy [Not Recovered/Not Resolved]
  - Drug ineffective [Not Recovered/Not Resolved]
  - Depression [Not Recovered/Not Resolved]
  - Educational problem [Not Recovered/Not Resolved]
